FAERS Safety Report 8154744-9 (Version None)
Quarter: 2012Q1

REPORT INFORMATION
  Report Type: 
  Country: None (occurrence: None)
  Receive Date: 20120221
  Receipt Date: 20120206
  Transmission Date: 20120608
  Serious: Yes (Hospitalization)
  Sender: FDA-Public Use
  Company Number: PHHY2011AU63857

PATIENT
  Sex: Male

DRUGS (1)
  1. CLOZARIL [Suspect]
     Dosage: 500 MG
     Dates: start: 20090824

REACTIONS (2)
  - SUICIDAL IDEATION [None]
  - SCHIZOPHRENIA [None]
